FAERS Safety Report 15933164 (Version 2)
Quarter: 2019Q1

REPORT INFORMATION
  Report Type: Spontaneous
  Country: JP (occurrence: JP)
  Receive Date: 20190207
  Receipt Date: 20190222
  Transmission Date: 20190417
  Serious: Yes (Hospitalization)
  Sender: FDA-Public Use
  Company Number: JP-GLAXOSMITHKLINE-JP2019012877

PATIENT
  Age: 69 Year
  Sex: Male
  Weight: 76 kg

DRUGS (3)
  1. CELECOX [Concomitant]
     Active Substance: CELECOXIB
     Indication: ARTHRALGIA
     Dosage: 100 MG, BID
     Route: 048
     Dates: start: 20181120, end: 20181128
  2. VOLTAREN TAPE [Suspect]
     Active Substance: DICLOFENAC SODIUM
     Indication: ARTHRALGIA
     Dosage: 30 MG, QD
     Route: 061
     Dates: start: 20181120, end: 20181128
  3. MUCOSTA [Concomitant]
     Active Substance: REBAMIPIDE
     Indication: GASTRITIS PROPHYLAXIS
     Dosage: 100 MG, BID
     Route: 048
     Dates: start: 20181120, end: 20181128

REACTIONS (6)
  - Generalised erythema [Recovering/Resolving]
  - Photosensitivity reaction [Recovering/Resolving]
  - Rash [Recovering/Resolving]
  - Dermatitis contact [Recovering/Resolving]
  - Erythema [Unknown]
  - Pyrexia [Recovered/Resolved]

NARRATIVE: CASE EVENT DATE: 20181127
